FAERS Safety Report 16212272 (Version 1)
Quarter: 2019Q2

REPORT INFORMATION
  Report Type: Spontaneous
  Country: US (occurrence: US)
  Receive Date: 20190418
  Receipt Date: 20190418
  Transmission Date: 20190711
  Serious: Yes (Death, Life-Threatening, Hospitalization, Disabling)
  Sender: FDA-Public Use
  Company Number: None

PATIENT
  Sex: Male

DRUGS (1)
  1. KRATOM CAPSULES [Suspect]
     Active Substance: HERBALS\MITRAGYNINE
     Indication: SUBSTANCE USE

REACTIONS (2)
  - Seizure [None]
  - Withdrawal syndrome [None]

NARRATIVE: CASE EVENT DATE: 20190401
